FAERS Safety Report 11530785 (Version 2)
Quarter: 2015Q3

REPORT INFORMATION
  Report Type: Spontaneous
  Country: US (occurrence: US)
  Receive Date: 20150921
  Receipt Date: 20150929
  Transmission Date: 20151125
  Serious: Yes (Hospitalization, Other)
  Sender: FDA-Public Use
  Company Number: US-BAXTER-2015BAX050664

PATIENT
  Sex: Female

DRUGS (1)
  1. DIANEAL LOW CALCIUM PERITONEAL DIALYSIS SOLUTION WITH DEXTROSE [Suspect]
     Active Substance: CALCIUM CHLORIDE\DEXTROSE\MAGNESIUM CHLORIDE\SODIUM CHLORIDE\SODIUM LACTATE
     Indication: PERITONEAL DIALYSIS
     Route: 033
     Dates: end: 20150911

REACTIONS (5)
  - Urinary tract infection [Unknown]
  - Peritonitis bacterial [Recovering/Resolving]
  - Peritonitis [Recovering/Resolving]
  - Peritoneal dialysis complication [Unknown]
  - Peritonitis [Unknown]

NARRATIVE: CASE EVENT DATE: 201501
